FAERS Safety Report 7796279-9 (Version None)
Quarter: 2011Q4

REPORT INFORMATION
  Report Type: 
  Country: None (occurrence: None)
  Receive Date: 20111004
  Receipt Date: 20090108
  Transmission Date: 20120403
  Serious: Yes (Hospitalization, Other)
  Sender: FDA-Public Use
  Company Number: PHHY2009TW60840

PATIENT
  Sex: Female

DRUGS (4)
  1. GLEEVEC [Suspect]
     Indication: GASTROINTESTINAL STROMAL TUMOUR
     Dosage: 600 MG, UNK
     Route: 048
     Dates: start: 20070418
  2. GLEEVEC [Suspect]
     Dosage: 600 MG, DAILY
     Route: 048
  3. GLEEVEC [Suspect]
     Dosage: 3 DF, UNK
  4. TRANSFUSIONS [Concomitant]

REACTIONS (33)
  - BREAST MASS [None]
  - MELAENA [None]
  - BLISTER [None]
  - FACIAL PAIN [None]
  - FACE OEDEMA [None]
  - CHEST DISCOMFORT [None]
  - DEPRESSION [None]
  - HYPOAESTHESIA [None]
  - LIP DRY [None]
  - SKIN DISCOLOURATION [None]
  - GASTRIC HAEMORRHAGE [None]
  - BLOOD GLUCOSE INCREASED [None]
  - MUSCULAR WEAKNESS [None]
  - DYSPNOEA [None]
  - CONFUSIONAL STATE [None]
  - MUSCULOSKELETAL PAIN [None]
  - SKIN FRAGILITY [None]
  - URINARY TRACT INFECTION [None]
  - ANAEMIA [None]
  - DIARRHOEA [None]
  - VOMITING [None]
  - OEDEMA [None]
  - GAIT DISTURBANCE [None]
  - FAECES DISCOLOURED [None]
  - JAUNDICE [None]
  - RENAL FAILURE ACUTE [None]
  - PYREXIA [None]
  - HAEMOGLOBIN DECREASED [None]
  - SWOLLEN TONGUE [None]
  - NASOPHARYNGITIS [None]
  - CEREBROVASCULAR ACCIDENT [None]
  - PNEUMONIA [None]
  - ASTHENIA [None]
